FAERS Safety Report 25109236 (Version 1)
Quarter: 2025Q1

REPORT INFORMATION
  Report Type: Report from Study
  Country: US (occurrence: US)
  Receive Date: 20250323
  Receipt Date: 20250323
  Transmission Date: 20250409
  Serious: Yes (Disabling)
  Sender: NOVARTIS
  Company Number: US-002147023-NVSC2024US245777

PATIENT
  Age: 10 Year
  Sex: Female

DRUGS (4)
  1. ILARIS [Suspect]
     Active Substance: CANAKINUMAB
     Indication: Pyrexia
     Dosage: 150 MG, QMO
     Route: 058
     Dates: start: 20240702
  2. ILARIS [Suspect]
     Active Substance: CANAKINUMAB
     Indication: Familial mediterranean fever
     Route: 065
  3. ILARIS [Suspect]
     Active Substance: CANAKINUMAB
     Dosage: 150 MG, Q3W
     Route: 058
     Dates: start: 20250214
  4. ILARIS [Suspect]
     Active Substance: CANAKINUMAB
     Route: 065
     Dates: start: 20250306

REACTIONS (8)
  - Abdominal pain upper [Recovered/Resolved]
  - Influenza like illness [Unknown]
  - Pyrexia [Unknown]
  - Cough [Unknown]
  - Nasopharyngitis [Unknown]
  - Oxygen saturation decreased [Unknown]
  - Influenza [Unknown]
  - Illness [Recovered/Resolved]

NARRATIVE: CASE EVENT DATE: 20250303
